FAERS Safety Report 12653291 (Version 5)
Quarter: 2016Q4

REPORT INFORMATION
  Report Type: Spontaneous
  Country: US (occurrence: US)
  Receive Date: 20160815
  Receipt Date: 20161111
  Transmission Date: 20170207
  Serious: Yes (Death, Hospitalization)
  Sender: FDA-Public Use
  Company Number: US-ACTELION-A-US2016-140509

PATIENT
  Age: 31 Year
  Sex: Female

DRUGS (4)
  1. VELETRI [Suspect]
     Active Substance: EPOPROSTENOL
     Indication: PULMONARY ARTERIAL HYPERTENSION
     Dosage: 18 NG/KG, PER MIN
     Route: 042
     Dates: start: 20160517, end: 20161103
  2. XARELTO [Concomitant]
     Active Substance: RIVAROXABAN
  3. TRACLEER [Suspect]
     Active Substance: BOSENTAN
     Indication: PULMONARY ARTERIAL HYPERTENSION
     Dosage: 125 MG, BID
     Route: 048
     Dates: end: 20161103
  4. TYVASO [Concomitant]
     Active Substance: TREPROSTINIL

REACTIONS (14)
  - Hypokalaemia [Unknown]
  - Abdominal pain upper [Unknown]
  - Death [Fatal]
  - Nausea [Unknown]
  - Vomiting [Unknown]
  - Dehydration [Unknown]
  - Abdominal pain [Unknown]
  - Chest pain [Unknown]
  - Pleural effusion [Unknown]
  - Anaemia [Unknown]
  - Pericardial effusion [Unknown]
  - Syncope [Unknown]
  - Dyspnoea [Unknown]
  - Agitation [Unknown]

NARRATIVE: CASE EVENT DATE: 20160813
